FAERS Safety Report 24948800 (Version 1)
Quarter: 2025Q1

REPORT INFORMATION
  Report Type: Spontaneous
  Country: US (occurrence: None)
  Receive Date: 20250208
  Receipt Date: 20250208
  Transmission Date: 20250408
  Serious: Yes (Disabling)
  Sender: FDA-CTU
  Company Number: None

PATIENT
  Age: 52 Year
  Sex: Female
  Weight: 56.25 kg

DRUGS (12)
  1. DAXXIFY [Suspect]
     Active Substance: DAXIBOTULINUMTOXIN A-LANM
     Indication: Off label use
     Route: 058
     Dates: start: 20250128, end: 20250128
  2. DAXXIFY [Suspect]
     Active Substance: DAXIBOTULINUMTOXIN A-LANM
     Indication: Face lift
  3. BUPROPION HYDROCHLORIDE [Concomitant]
     Active Substance: BUPROPION HYDROCHLORIDE
  4. GUANFACINE [Concomitant]
     Active Substance: GUANFACINE
  5. DAXXIFY [Concomitant]
     Active Substance: DAXIBOTULINUMTOXIN A-LANM
  6. REFRESH OPTIVE GEL DROPS [Concomitant]
     Active Substance: CARBOXYMETHYLCELLULOSE SODIUM\GLYCERIN
  7. Refresh Celluvisc Eye Gel Drops [Concomitant]
  8. Miebo Eyedrops [Concomitant]
  9. Metagenics Hemagenics [Concomitant]
  10. Metagenics Phytomulti [Concomitant]
  11. Cranberry Supplement [Concomitant]
  12. 50 mg doxycycline daily [Concomitant]

REACTIONS (16)
  - Eye irritation [None]
  - Eye pain [None]
  - Abnormal sensation in eye [None]
  - Abdominal pain upper [None]
  - Anxiety [None]
  - Palpitations [None]
  - Swelling of eyelid [None]
  - Excessive eye blinking [None]
  - Eyelid ptosis [None]
  - Nasal discomfort [None]
  - Vertigo [None]
  - Headache [None]
  - Paranasal sinus discomfort [None]
  - Hypoaesthesia [None]
  - Dry eye [None]
  - Meibomian gland dysfunction [None]

NARRATIVE: CASE EVENT DATE: 20250128
